FAERS Safety Report 11702018 (Version 1)
Quarter: 2015Q4

REPORT INFORMATION
  Report Type: Spontaneous
  Country: GB (occurrence: GB)
  Receive Date: 20151105
  Receipt Date: 20151105
  Transmission Date: 20160304
  Serious: Yes (Other)
  Sender: FDA-Public Use
  Company Number: PHHY2015GB142647

PATIENT
  Age: 11 Week
  Sex: Female
  Weight: 3.8 kg

DRUGS (1)
  1. AMIODARONE [Suspect]
     Active Substance: AMIODARONE
     Indication: TACHYARRHYTHMIA
     Dosage: 5 MG/KG,
     Route: 065

REACTIONS (2)
  - Cardiac output decreased [Unknown]
  - Bradycardia [Unknown]
